FAERS Safety Report 14782404 (Version 1)
Quarter: 2018Q2

REPORT INFORMATION
  Report Type: Spontaneous
  Country: US (occurrence: US)
  Receive Date: 20180412
  Receipt Date: 20180412
  Transmission Date: 20180711
  Serious: Yes (Hospitalization)
  Sender: FDA-Public Use
  Company Number: None

PATIENT
  Age: 62 Year
  Sex: Female

DRUGS (14)
  1. OMEPRAZOLE. [Concomitant]
     Active Substance: OMEPRAZOLE
  2. IOPHEN C-NR [Concomitant]
  3. MULTI VITE [Concomitant]
  4. FE [Concomitant]
     Active Substance: IRON
  5. NOVOLIN R [Concomitant]
     Active Substance: INSULIN HUMAN
  6. LISINOPRIL. [Concomitant]
     Active Substance: LISINOPRIL
  7. PATANOL [Concomitant]
     Active Substance: OLOPATADINE HYDROCHLORIDE
  8. ZYKADIA [Suspect]
     Active Substance: CERITINIB
     Indication: LUNG NEOPLASM MALIGNANT
     Route: 048
     Dates: start: 20180127
  9. XGEVA [Concomitant]
     Active Substance: DENOSUMAB
  10. BENZONATATE. [Concomitant]
     Active Substance: BENZONATATE
  11. LANTUS [Concomitant]
     Active Substance: INSULIN GLARGINE
  12. HYDROCO/APAP [Concomitant]
     Active Substance: ACETAMINOPHEN\HYDROCODONE
  13. CALCIUM [Concomitant]
     Active Substance: CALCIUM
  14. ZOMETA [Concomitant]
     Active Substance: ZOLEDRONIC ACID

REACTIONS (4)
  - Dizziness [None]
  - Metastases to central nervous system [None]
  - Diarrhoea [None]
  - Nausea [None]

NARRATIVE: CASE EVENT DATE: 20180326
